FAERS Safety Report 8305086-X (Version None)
Quarter: 2012Q2

REPORT INFORMATION
  Report Type: 
  Country: None (occurrence: None)
  Receive Date: 20120423
  Receipt Date: 20120414
  Transmission Date: 20120825
  Serious: Yes (Other)
  Sender: FDA-Public Use
  Company Number: US-BAYER-2012-037365

PATIENT
  Age: 19 Year
  Sex: Male
  Weight: 67 kg

DRUGS (2)
  1. MULTI-VITAMINS [Concomitant]
  2. BAYER EXTRA STRENGTH BACK + BODY PAIN [Suspect]
     Dosage: 1 DF, ONCE
     Route: 048

REACTIONS (5)
  - HYPERSENSITIVITY [None]
  - SWELLING FACE [None]
  - FACE OEDEMA [None]
  - URTICARIA [None]
  - PRURITUS [None]
